FAERS Safety Report 7623008 (Version 2)
Quarter: 2015Q3

REPORT INFORMATION
  Report Type: Report from Study
  Country: US (occurrence: US)
  Receive Date: 20101011
  Receipt Date: 20150914
  Transmission Date: 20151125
  Serious: Yes (Other)
  Sender: FDA-Public Use
  Company Number: US-BIOGENIDEC-2010BI034773

PATIENT
  Sex: Female
  Weight: 63 kg

DRUGS (16)
  1. LEVOTHYROXINE. [Concomitant]
     Active Substance: LEVOTHYROXINE
  2. VITAMIN D [Concomitant]
     Active Substance: CHOLECALCIFEROL
  3. NIFEDIPINE. [Concomitant]
     Active Substance: NIFEDIPINE
  4. TETRACAINE [Concomitant]
     Active Substance: TETRACAINE\TETRACAINE HYDROCHLORIDE
  5. AVONEX [Suspect]
     Active Substance: INTERFERON BETA-1A
     Indication: MULTIPLE SCLEROSIS
     Route: 030
     Dates: start: 20030326, end: 20060515
  6. CIPRO [Concomitant]
     Active Substance: CIPROFLOXACIN HYDROCHLORIDE
     Route: 048
  7. BACLOFEN. [Concomitant]
     Active Substance: BACLOFEN
     Route: 048
  8. AVONEX [Suspect]
     Active Substance: INTERFERON BETA-1A
     Indication: MULTIPLE SCLEROSIS
     Route: 030
     Dates: start: 20120704, end: 20121004
  9. ALEVE [Concomitant]
     Active Substance: NAPROXEN SODIUM
  10. AMANTADINE [Concomitant]
     Active Substance: AMANTADINE
  11. AMITRIPTYLINE [Concomitant]
     Active Substance: AMITRIPTYLINE
  12. AVONEX [Suspect]
     Active Substance: INTERFERON BETA-1A
     Indication: MULTIPLE SCLEROSIS
     Route: 030
     Dates: start: 20091202
  13. FOLIC ACID. [Concomitant]
     Active Substance: FOLIC ACID
  14. KEFLEX [Concomitant]
     Active Substance: CEPHALEXIN
  15. RITALIN [Concomitant]
     Active Substance: METHYLPHENIDATE HYDROCHLORIDE
  16. VITAMIN B12 [Concomitant]
     Active Substance: CYANOCOBALAMIN

REACTIONS (1)
  - Thyroid cancer [Recovered/Resolved]
